FAERS Safety Report 9645496 (Version 1)
Quarter: 2013Q4

REPORT INFORMATION
  Report Type: Spontaneous
  Country: US (occurrence: None)
  Receive Date: 20131023
  Receipt Date: 20131023
  Transmission Date: 20140711
  Serious: Yes (Other)
  Sender: FDA-Public Use
  Company Number: 2013US00723

PATIENT
  Age: 1 Year
  Sex: Female
  Weight: 8.89 kg

DRUGS (1)
  1. LAMOTRIGINE [Suspect]

REACTIONS (2)
  - Serotonin syndrome [None]
  - Wrong drug administered [None]
